FAERS Safety Report 7041986-9 (Version None)
Quarter: 2010Q4

REPORT INFORMATION
  Report Type: 
  Country: None (occurrence: None)
  Receive Date: 20101013
  Receipt Date: 20091116
  Transmission Date: 20110411
  Serious: No
  Sender: FDA-Public Use
  Company Number: US-ASTRAZENECA-2009SE26704

PATIENT
  Age: 70 Year
  Sex: Female
  Weight: 72.6 kg

DRUGS (5)
  1. SYMBICORT [Suspect]
     Dosage: 80/4.5, 1 PUFF BID
     Route: 055
  2. CARDIZEM CD [Concomitant]
  3. DICLOFENAC SODIUM [Concomitant]
  4. GABAPENTIN [Concomitant]
  5. SINGULAIR [Concomitant]

REACTIONS (3)
  - DRUG DOSE OMISSION [None]
  - DYSPNOEA [None]
  - GENERAL PHYSICAL HEALTH DETERIORATION [None]
